FAERS Safety Report 25722440 (Version 4)
Quarter: 2025Q4

REPORT INFORMATION
  Report Type: Spontaneous
  Country: CH (occurrence: CH)
  Receive Date: 20250825
  Receipt Date: 20251212
  Transmission Date: 20260117
  Serious: Yes (Other)
  Sender: INCYTE
  Company Number: CH-EVENT-003981

PATIENT
  Age: 68 Year

DRUGS (6)
  1. TAFASITAMAB [Suspect]
     Active Substance: TAFASITAMAB
     Indication: Follicular lymphoma recurrent
     Dosage: 780 MILLIGRAM (12MG/KG)
  2. RITUXIMAB [Suspect]
     Active Substance: RITUXIMAB
     Indication: Follicular lymphoma
     Dosage: UNK
     Route: 065
  3. REVLIMID [Suspect]
     Active Substance: LENALIDOMIDE
     Indication: Follicular lymphoma
     Dosage: UNK
     Route: 065
  4. REVLIMID [Suspect]
     Active Substance: LENALIDOMIDE
     Dosage: 10 MILLIGRAM,EVERY SECOND DAY
     Route: 065
  5. REVLIMID [Suspect]
     Active Substance: LENALIDOMIDE
     Dosage: 5 MG OR 1 (EVERY OTHER DAY)
     Route: 065
  6. XARELTO [Concomitant]
     Active Substance: RIVAROXABAN
     Indication: Thrombosis prophylaxis
     Dosage: 10 MILLIGRAM, QD, IN THE MORNING
     Route: 065

REACTIONS (48)
  - Follicular lymphoma [Unknown]
  - Thrombocytopenia [Unknown]
  - Neutropenia [Unknown]
  - Leukopenia [Unknown]
  - Thrombosis [Unknown]
  - Renal impairment [Unknown]
  - Fatigue [Unknown]
  - Asthenia [Unknown]
  - Headache [Unknown]
  - Mucosal dryness [Unknown]
  - Abdominal distension [Unknown]
  - Hyperaesthesia teeth [Unknown]
  - C-reactive protein increased [Unknown]
  - Dyspnoea [Unknown]
  - Flank pain [Unknown]
  - Myalgia [Unknown]
  - Muscle spasms [Unknown]
  - Oedema peripheral [Unknown]
  - Weight decreased [Unknown]
  - Disease progression [Unknown]
  - Dry mouth [Unknown]
  - Lipase increased [Unknown]
  - Amylase increased [Unknown]
  - Implant site pain [Not Recovered/Not Resolved]
  - Liver function test increased [Unknown]
  - Scar pain [Unknown]
  - Arthralgia [Unknown]
  - Wound [Unknown]
  - Pleural effusion [Unknown]
  - Hypoaesthesia [Unknown]
  - Salivary gland induration [Unknown]
  - Haemoglobin decreased [Unknown]
  - Haematocrit decreased [Unknown]
  - Red blood cell count decreased [Unknown]
  - Reticulocyte count increased [Unknown]
  - Neutrophil percentage increased [Unknown]
  - Eosinophil percentage increased [Unknown]
  - Basophil percentage increased [Unknown]
  - Monocyte percentage increased [Unknown]
  - Lymphocyte count decreased [Unknown]
  - Blood glucose increased [Unknown]
  - Protein total decreased [Unknown]
  - Blood uric acid increased [Unknown]
  - Heat oedema [Unknown]
  - Musculoskeletal stiffness [Unknown]
  - Weight increased [Unknown]
  - Suture related complication [Unknown]
  - Off label use [Unknown]
